FAERS Safety Report 9214743 (Version 2)
Quarter: 2013Q2

REPORT INFORMATION
  Report Type: Spontaneous
  Country: US (occurrence: None)
  Receive Date: 20120827
  Receipt Date: 20121123
  Transmission Date: 20140414
  Serious: No
  Sender: FDA-Public Use
  Company Number: 355796

PATIENT
  Age: 64 Year
  Sex: Female

DRUGS (1)
  1. VICTOZA [Suspect]
     Indication: PRODUCT USED FOR UNKNOWN INDICATION
     Route: 058
     Dates: end: 20070709

REACTIONS (3)
  - Chest pain [None]
  - Abdominal pain upper [None]
  - Diarrhoea [None]
